FAERS Safety Report 10522487 (Version 7)
Quarter: 2015Q1

REPORT INFORMATION
  Report Type: Spontaneous
  Country: US (occurrence: US)
  Receive Date: 20141016
  Receipt Date: 20150109
  Transmission Date: 20150720
  Serious: Yes (Hospitalization)
  Sender: FDA-Public Use
  Company Number: US-JNJFOC-20141010428

PATIENT
  Age: 86 Year
  Sex: Female

DRUGS (9)
  1. FOLIC ACID. [Concomitant]
     Active Substance: FOLIC ACID
     Route: 065
  2. CALCIUM [Concomitant]
     Active Substance: CALCIUM
     Route: 065
  3. XARELTO [Suspect]
     Active Substance: RIVAROXABAN
     Indication: ATRIAL FIBRILLATION
     Route: 048
     Dates: end: 20140831
  4. ZYRTEC [Concomitant]
     Active Substance: CETIRIZINE HYDROCHLORIDE
     Route: 065
  5. XARELTO [Suspect]
     Active Substance: RIVAROXABAN
     Indication: CEREBROVASCULAR ACCIDENT PROPHYLAXIS
     Route: 048
     Dates: end: 20140831
  6. PRAVASTATIN [Concomitant]
     Active Substance: PRAVASTATIN\PRAVASTATIN SODIUM
     Route: 065
  7. MAGNESIUM [Concomitant]
     Active Substance: MAGNESIUM
     Route: 065
  8. ZANTAC [Concomitant]
     Active Substance: RANITIDINE HYDROCHLORIDE
     Route: 065
  9. OCUVITE [Concomitant]
     Active Substance: VITAMINS
     Route: 065

REACTIONS (12)
  - Candida infection [Unknown]
  - Urinary tract infection [Unknown]
  - Ileus paralytic [Recovering/Resolving]
  - Contusion [Recovered/Resolved]
  - Hypovolaemic shock [Recovered/Resolved]
  - Deep vein thrombosis [Recovering/Resolving]
  - Ventricular tachycardia [Recovered/Resolved]
  - Ischaemic hepatitis [Recovered/Resolved]
  - Hepatic haemorrhage [Recovered/Resolved]
  - Pericardial effusion [Unknown]
  - Fall [Recovered/Resolved]
  - Intra-abdominal haemorrhage [Recovered/Resolved]

NARRATIVE: CASE EVENT DATE: 2014
